FAERS Safety Report 21384896 (Version 2)
Quarter: 2025Q1

REPORT INFORMATION
  Report Type: Report from Study
  Country: US (occurrence: US)
  Receive Date: 20220928
  Receipt Date: 20250326
  Transmission Date: 20250408
  Serious: Yes (Hospitalization)
  Sender: AVEO PHARMACEUTICALS
  Company Number: US-AVEO ONCOLOGY-2022-AVEO-US000262

PATIENT
  Age: 68 Year

DRUGS (9)
  1. TIVOZANIB [Suspect]
     Active Substance: TIVOZANIB
     Indication: Renal cell carcinoma
     Dosage: 1.34 MG, DAILY FOR 21 DAYS WITH 7 DAYS OFF (28-DAY CYCLE)
  2. FAMOTIDINE [Concomitant]
     Active Substance: FAMOTIDINE
  3. HYDROCHLOROTHIAZIDE [Concomitant]
     Active Substance: HYDROCHLOROTHIAZIDE
  4. LISINOPRIL [Concomitant]
     Active Substance: LISINOPRIL
  5. METFORMIN [Concomitant]
     Active Substance: METFORMIN HYDROCHLORIDE
  6. NIFEDIPINE [Concomitant]
     Active Substance: NIFEDIPINE
  7. NORCO [Concomitant]
     Active Substance: ACETAMINOPHEN\HYDROCODONE BITARTRATE
  8. FERROUS SULFATE [Concomitant]
     Active Substance: FERROUS SULFATE
  9. SENNA [Concomitant]
     Active Substance: SENNOSIDES

REACTIONS (1)
  - Decreased appetite [Not Recovered/Not Resolved]
